FAERS Safety Report 10045192 (Version 1)
Quarter: 2014Q1

REPORT INFORMATION
  Report Type: Spontaneous
  Country: US (occurrence: None)
  Receive Date: 20140306
  Receipt Date: 20140306
  Transmission Date: 20141002
  Serious: Yes (Other)
  Sender: FDA-Public Use
  Company Number: 163-21880-13053092

PATIENT
  Age: 71 Year
  Sex: Female

DRUGS (7)
  1. REVLIMID (LENALIDOMIDE) (10 MILLIGRAM, CAPSULES) [Suspect]
     Indication: MYELODYSPLASTIC SYNDROME
     Dosage: 10MG, 21 IN 28D, PO
     Route: 048
     Dates: start: 20130429
  2. PREDNISONE (PREDNISONE) [Concomitant]
  3. LISINOPRIL (LISINOPRIL) [Concomitant]
  4. PROTONIX [Concomitant]
  5. GLUCOSAMINE (GLUCOSAMINE) [Concomitant]
  6. CALCIUM (CALCIUM) [Concomitant]
  7. VITAMIN D (ERGOCALCIFEROL) [Concomitant]

REACTIONS (2)
  - Haemoglobin decreased [None]
  - Bronchitis [None]
